FAERS Safety Report 8826277 (Version 1)
Quarter: 2012Q4

REPORT INFORMATION
  Report Type: 
  Country: FR (occurrence: FR)
  Receive Date: 20121005
  Receipt Date: 20121005
  Transmission Date: 20130627
  Serious: Yes (Hospitalization)
  Sender: FDA-Public Use
  Company Number: FR-BRISTOL-MYERS SQUIBB COMPANY-17000993

PATIENT
  Age: 79 Year
  Sex: Female
  Weight: 65 kg

DRUGS (16)
  1. COUMADIN [Suspect]
     Indication: ATRIAL FIBRILLATION
     Route: 048
     Dates: start: 20110523, end: 20110608
  2. ACTONEL [Concomitant]
  3. AMLOR [Concomitant]
     Dosage: 1df=10 units NOS
  4. BACLOFEN [Concomitant]
  5. DRIPTANE [Concomitant]
  6. CALCIUM [Concomitant]
  7. CORDARONE [Concomitant]
  8. DAFALGAN [Concomitant]
  9. LIPANTHYL [Concomitant]
     Dosage: Formulation-Lipanthyl 160.daily in eveg
  10. LOXEN [Concomitant]
     Dosage: Formulation-Loxen 20
  11. TRANSIPEG [Concomitant]
  12. UVEDOSE [Concomitant]
     Dosage: 1df=1 ampoule
  13. DIFFU-K [Concomitant]
  14. DUPHALAC [Concomitant]
     Dosage: Frequency-(2 in mrng and 1 in eveg)
  15. LASILIX [Concomitant]
     Dosage: Formulation-Lasilix 40
  16. LEVOTHYROX [Concomitant]
     Dosage: Formulation-Levothyrox 100.
one in mrng

REACTIONS (1)
  - Leukocytoclastic vasculitis [Recovered/Resolved]
